FAERS Safety Report 10345698 (Version 2)
Quarter: 2014Q3

REPORT INFORMATION
  Report Type: Spontaneous
  Country: ES (occurrence: ES)
  Receive Date: 20140728
  Receipt Date: 20140818
  Transmission Date: 20150326
  Serious: Yes (Hospitalization)
  Sender: FDA-Public Use
  Company Number: ES-BAYER-2014-112388

PATIENT
  Age: 74 Year
  Sex: Male

DRUGS (1)
  1. NEXAVAR [Suspect]
     Active Substance: SORAFENIB
     Indication: HEPATIC CANCER
     Dosage: UNK
     Dates: start: 2012, end: 2014

REACTIONS (4)
  - Bacterial sepsis [None]
  - Peripheral ischaemia [Not Recovered/Not Resolved]
  - General physical health deterioration [None]
  - Septic shock [None]

NARRATIVE: CASE EVENT DATE: 2014
